FAERS Safety Report 14402089 (Version 3)
Quarter: 2018Q1

REPORT INFORMATION
  Report Type: Other
  Country: US (occurrence: US)
  Receive Date: 20180117
  Receipt Date: 20180202
  Transmission Date: 20180509
  Serious: Yes (Death, Hospitalization)
  Sender: FDA-Public Use
  Company Number: US-UNITED THERAPEUTICS-UNT-2018-000205

PATIENT
  Age: 78 Year
  Sex: Female
  Weight: 78.46 kg

DRUGS (1)
  1. TYVASO [Suspect]
     Active Substance: TREPROSTINIL
     Indication: PULMONARY ARTERIAL HYPERTENSION
     Dosage: 18-54 MICROGRAMS, QID
     Dates: start: 20171222

REACTIONS (6)
  - Influenza like illness [Unknown]
  - Death [Fatal]
  - Device use error [Unknown]
  - Oxygen saturation decreased [Unknown]
  - Heart rate irregular [Unknown]
  - Fluid retention [Unknown]

NARRATIVE: CASE EVENT DATE: 2017
